FAERS Safety Report 15312573 (Version 3)
Quarter: 2018Q4

REPORT INFORMATION
  Report Type: Spontaneous
  Country: US (occurrence: US)
  Receive Date: 20180823
  Receipt Date: 20181011
  Transmission Date: 20190204
  Serious: No
  Sender: FDA-Public Use
  Company Number: US-SA-2018SA232288

PATIENT
  Sex: Male

DRUGS (1)
  1. TOUJEO [Suspect]
     Active Substance: INSULIN GLARGINE
     Indication: TYPE 2 DIABETES MELLITUS
     Dosage: 10 IU, QD
     Route: 065

REACTIONS (4)
  - Dizziness [Unknown]
  - Blood glucose fluctuation [Unknown]
  - Malaise [Unknown]
  - Drug ineffective [Unknown]
